FAERS Safety Report 13531418 (Version 1)
Quarter: 2017Q2

REPORT INFORMATION
  Report Type: Spontaneous
  Country: ES (occurrence: ES)
  Receive Date: 20170510
  Receipt Date: 20170510
  Transmission Date: 20170830
  Serious: Yes (Other)
  Sender: FDA-Public Use
  Company Number: ES-ACCORD-051279

PATIENT
  Age: 67 Year
  Sex: Female
  Weight: 74 kg

DRUGS (2)
  1. OXALIPLATIN ACCORD [Suspect]
     Active Substance: OXALIPLATIN
     Indication: COLON CANCER
     Dosage: XELOX WITH OXALI AT 130 MG/M^2 (FIRST CYCLE).??5 MG/ML
     Route: 042
     Dates: start: 20170323, end: 20170323
  2. CAPECITABINE. [Concomitant]
     Active Substance: CAPECITABINE
     Indication: COLON CANCER

REACTIONS (3)
  - Wheezing [Recovered/Resolved]
  - Aphasia [Recovered/Resolved]
  - Laryngospasm [Unknown]

NARRATIVE: CASE EVENT DATE: 20170323
